FAERS Safety Report 6960526-3 (Version None)
Quarter: 2010Q3

REPORT INFORMATION
  Report Type: 
  Country: None (occurrence: None)
  Receive Date: 20100901
  Receipt Date: 20100820
  Transmission Date: 20110219
  Serious: Yes (Other)
  Sender: FDA-Public Use
  Company Number: CA-JNJFOC-20090100574

PATIENT
  Sex: Female

DRUGS (6)
  1. DURAGESIC-100 [Suspect]
     Indication: ANALGESIC THERAPY
     Route: 062
  2. DURAGESIC-100 [Suspect]
     Route: 062
  3. DURAGESIC-100 [Suspect]
     Route: 062
  4. MORPHINE [Suspect]
     Indication: PRODUCT USED FOR UNKNOWN INDICATION
     Route: 065
  5. NOZINAN [Concomitant]
     Indication: RELAXATION THERAPY
  6. IMIPRAMINE [Concomitant]

REACTIONS (19)
  - BRAIN INJURY [None]
  - CEREBROVASCULAR ACCIDENT [None]
  - INTERNAL INJURY [None]
  - INTESTINAL FUNCTIONAL DISORDER [None]
  - INTESTINAL PERFORATION [None]
  - LIFE EXPECTANCY SHORTENED [None]
  - MUSCLE ATROPHY [None]
  - MYOCARDIAL INFARCTION [None]
  - NAUSEA [None]
  - NIGHTMARE [None]
  - OVERDOSE [None]
  - RECTAL HAEMORRHAGE [None]
  - RENAL FAILURE [None]
  - SPINAL CORD INJURY [None]
  - SUICIDAL IDEATION [None]
  - TREATMENT NONCOMPLIANCE [None]
  - VAGINAL HAEMORRHAGE [None]
  - WEIGHT DECREASED [None]
  - WITHDRAWAL SYNDROME [None]
